FAERS Safety Report 10202298 (Version 1)
Quarter: 2014Q2

REPORT INFORMATION
  Report Type: Spontaneous
  Country: GB (occurrence: GB)
  Receive Date: 20140528
  Receipt Date: 20140528
  Transmission Date: 20141212
  Serious: Yes (Other)
  Sender: FDA-Public Use
  Company Number: GB-WATSON-2014-11340

PATIENT
  Sex: Female

DRUGS (2)
  1. PAROXETINE (UNKNOWN) [Suspect]
     Indication: DEPRESSION
     Dosage: 20 MG, DAILY
     Route: 065
     Dates: end: 2005
  2. CITALOPRAM (UNKNOWN) [Suspect]
     Indication: DEPRESSION
     Dosage: 20 MG, DAILY
     Route: 065
     Dates: start: 2005, end: 2009

REACTIONS (2)
  - Alcoholism [Recovered/Resolved]
  - Hypomania [Recovered/Resolved]
